FAERS Safety Report 4382532-8 (Version None)
Quarter: 2004Q2

REPORT INFORMATION
  Report Type: 
  Country: None (occurrence: None)
  Receive Date: 20040617
  Receipt Date: 20040604
  Transmission Date: 20050107
  Serious: Yes (Other)
  Sender: FDA-Public Use
  Company Number: 2004036603

PATIENT
  Age: 59 Year
  Sex: Female

DRUGS (6)
  1. LIPITOR [Suspect]
     Indication: TYPE IIA HYPERLIPIDAEMIA
     Dosage: 10 MG (1 IN 1 D), ORAL
     Route: 048
     Dates: start: 20000629, end: 20040519
  2. ALL OTHER THERAPEUTIC PRODUCTS (ALL OTHER THERAPEUTIC PRODUCTS) [Suspect]
     Indication: TYPE IIA HYPERLIPIDAEMIA
     Dosage: 2 MG (1 IN 1 D)
     Dates: start: 20031023, end: 20031101
  3. COLESTILAN (COLESTILAN) [Suspect]
     Indication: TYPE IIA HYPERLIPIDAEMIA
     Dosage: 3.62 GRAM (1 IN 1 D),
     Dates: start: 20030124, end: 20031023
  4. ACETYLSALICYLIC ACID SRT [Concomitant]
  5. TOCOPHERYL NICOTINATE (TOCOPHERYL NICOTINATE) [Concomitant]
  6. TERBINAFINE HCL [Concomitant]

REACTIONS (20)
  - ATRIOVENTRICULAR BLOCK [None]
  - ATRIOVENTRICULAR BLOCK SECOND DEGREE [None]
  - BLOOD BILIRUBIN INCREASED [None]
  - BLOOD PRESSURE SYSTOLIC INCREASED [None]
  - BRADYCARDIA [None]
  - DYSPNOEA [None]
  - DYSPNOEA EXERTIONAL [None]
  - FEELING ABNORMAL [None]
  - HEART RATE DECREASED [None]
  - HYPERCHOLESTEROLAEMIA [None]
  - MALAISE [None]
  - MEDICATION ERROR [None]
  - METABOLIC DISORDER [None]
  - MYOCARDIAL ISCHAEMIA [None]
  - PULMONARY INFARCTION [None]
  - SENSATION OF HEAVINESS [None]
  - SUPRAVENTRICULAR EXTRASYSTOLES [None]
  - URINARY TRACT INFECTION [None]
  - VENTRICULAR EXTRASYSTOLES [None]
  - WHITE BLOOD CELL COUNT DECREASED [None]
